FAERS Safety Report 7723339-0 (Version None)
Quarter: 2011Q3

REPORT INFORMATION
  Report Type: 
  Country: None (occurrence: None)
  Receive Date: 20110901
  Receipt Date: 20110901
  Transmission Date: 20111222
  Serious: Yes (Disabling, Other)
  Sender: FDA-Public Use
  Company Number: None

PATIENT
  Sex: Male
  Weight: 94.347 kg

DRUGS (1)
  1. AVASTIN [Suspect]

REACTIONS (1)
  - BLINDNESS UNILATERAL [None]
